FAERS Safety Report 7320967-1 (Version None)
Quarter: 2011Q1

REPORT INFORMATION
  Report Type: 
  Country: None (occurrence: None)
  Receive Date: 20110228
  Receipt Date: 20110217
  Transmission Date: 20110831
  Serious: Yes (Hospitalization)
  Sender: FDA-Public Use
  Company Number: US-ASTRAZENECA-2009SE07027

PATIENT
  Age: 66 Year
  Sex: Female
  Weight: 97.5 kg

DRUGS (5)
  1. ISASORBIDE [Concomitant]
  2. HYZAAR [Concomitant]
  3. GLYBRIDE [Concomitant]
  4. CRESTOR [Suspect]
     Route: 048
  5. WARSARINE [Concomitant]

REACTIONS (2)
  - ARTERIAL THROMBOSIS [None]
  - BLOOD CHOLESTEROL DECREASED [None]
